FAERS Safety Report 5230469-4 (Version None)
Quarter: 2007Q1

REPORT INFORMATION
  Report Type: 
  Country: None (occurrence: None)
  Receive Date: 20070202
  Receipt Date: 20070118
  Transmission Date: 20070707
  Serious: Yes (Hospitalization, Other)
  Sender: FDA-Public Use
  Company Number: 2007BL000236

PATIENT
  Age: 39 Year
  Sex: Female

DRUGS (6)
  1. DEXAGEL AUGENTROPFEN (DEXAMETHASONE SODIUM PHOSPATE) [Suspect]
     Indication: KERATITIS
     Dosage: UNKNOWN; OPHTHALMIC
     Route: 047
     Dates: end: 19960101
  2. CALCIUM [Concomitant]
  3. ANTIBIOTICS FOR TOPICAL USE [Concomitant]
  4. .. [Concomitant]
  5. HYDROCORTISONE [Concomitant]
  6. PROPARACAINE HYDROCHLORIDE [Concomitant]

REACTIONS (7)
  - CORNEAL DEPOSITS [None]
  - CORNEAL EROSION [None]
  - CORNEAL NEOVASCULARISATION [None]
  - CORNEAL PERFORATION [None]
  - CORNEAL TRANSPLANT [None]
  - IMPAIRED HEALING [None]
  - LACRIMAL DISORDER [None]
